FAERS Safety Report 6604890-3 (Version None)
Quarter: 2010Q1

REPORT INFORMATION
  Report Type: 
  Country: None (occurrence: None)
  Receive Date: 20100226
  Receipt Date: 20100215
  Transmission Date: 20100710
  Serious: Yes (Hospitalization)
  Sender: FDA-Public Use
  Company Number: B0631517A

PATIENT
  Sex: Male

DRUGS (7)
  1. ZOPHREN IV [Suspect]
     Dosage: 8MG SINGLE DOSE
     Route: 042
     Dates: start: 20090817, end: 20090817
  2. FLUORO-URACILE [Suspect]
     Dosage: 5760MG CUMULATIVE DOSE
     Route: 042
     Dates: start: 20090817, end: 20090818
  3. CISPLATIN [Suspect]
     Dosage: 140MG SINGLE DOSE
     Route: 042
     Dates: start: 20090817, end: 20090817
  4. ERBITUX [Suspect]
     Dosage: 360MG CYCLIC
     Route: 042
     Dates: start: 20090817, end: 20090831
  5. POLARAMINE [Suspect]
     Indication: PREMEDICATION
     Dosage: 5MG CYCLIC
     Route: 042
     Dates: start: 20090817, end: 20090831
  6. METHYLPREDNISOLONE [Suspect]
     Dosage: 60MG CYCLIC
     Route: 042
     Dates: start: 20090817, end: 20090831
  7. EMEND [Suspect]
     Route: 048
     Dates: start: 20090818, end: 20090819

REACTIONS (3)
  - AMAUROSIS [None]
  - GLARE [None]
  - MALAISE [None]
